FAERS Safety Report 7924893-6 (Version None)
Quarter: 2011Q4

REPORT INFORMATION
  Report Type: 
  Country: None (occurrence: None)
  Receive Date: 20111118
  Receipt Date: 20110329
  Transmission Date: 20120403
  Serious: Yes (Hospitalization)
  Sender: FDA-Public Use
  Company Number: US-AMGEN-USASP2011016842

PATIENT
  Age: 68 Year
  Sex: Female

DRUGS (2)
  1. ENBREL [Suspect]
     Indication: PSORIATIC ARTHROPATHY
     Dosage: 50 MG, QWK
     Dates: start: 20100726, end: 20110318
  2. ENBREL [Suspect]
     Indication: PSORIASIS

REACTIONS (3)
  - CELLULITIS [None]
  - LUNG INFECTION [None]
  - RESPIRATORY TRACT INFECTION [None]
